FAERS Safety Report 6246929-3 (Version None)
Quarter: 2009Q2

REPORT INFORMATION
  Report Type: 
  Country: None (occurrence: None)
  Receive Date: 20090624
  Receipt Date: 20090624
  Transmission Date: 20091009
  Serious: Yes (Life-Threatening, Hospitalization)
  Sender: FDA-Public Use
  Company Number: None

PATIENT
  Age: 72 Year
  Sex: Male

DRUGS (1)
  1. CIPROFLOXACIN [Suspect]
     Indication: SURGERY
     Dates: start: 20090604, end: 20090609

REACTIONS (6)
  - BILE DUCT STONE [None]
  - CHOLANGITIS [None]
  - METABOLIC ACIDOSIS [None]
  - NEPHRITIS ALLERGIC [None]
  - RENAL FAILURE ACUTE [None]
  - URINARY BLADDER ATROPHY [None]
